FAERS Safety Report 5099436-8 (Version None)
Quarter: 2006Q3

REPORT INFORMATION
  Report Type: 
  Country: None (occurrence: None)
  Receive Date: 20060905
  Receipt Date: 20060905
  Transmission Date: 20061208
  Serious: Yes (Congenital Anomaly)
  Sender: FDA-Public Use
  Company Number: None

PATIENT
  Sex: Male
  Weight: 86.1834 kg

DRUGS (1)
  1. RITALIN [Suspect]
     Dosage: 10 MG 9 QD
     Dates: start: 19970101

REACTIONS (21)
  - ABNORMAL BEHAVIOUR [None]
  - ANGER [None]
  - APATHY [None]
  - ASOCIAL BEHAVIOUR [None]
  - ASTHENIA [None]
  - BLOOD PRESSURE INCREASED [None]
  - DEPRESSION [None]
  - DISTURBANCE IN ATTENTION [None]
  - DRUG EFFECT DECREASED [None]
  - FATIGUE [None]
  - FEELING ABNORMAL [None]
  - FRUSTRATION [None]
  - GAIT DISTURBANCE [None]
  - HEADACHE [None]
  - IRRITABILITY [None]
  - LETHARGY [None]
  - MEMORY IMPAIRMENT [None]
  - MENTAL STATUS CHANGES [None]
  - PHARMACEUTICAL PRODUCT COMPLAINT [None]
  - READING DISORDER [None]
  - SPEECH DISORDER [None]
